FAERS Safety Report 10704935 (Version 2)
Quarter: 2015Q1

REPORT INFORMATION
  Report Type: Spontaneous
  Country: US (occurrence: None)
  Receive Date: 20150108
  Receipt Date: 20150325
  Transmission Date: 20150721
  Serious: Yes (Hospitalization)
  Sender: FDA-Public Use
  Company Number: CIO14088289

PATIENT
  Age: 3 Year
  Sex: Female
  Weight: 15.9 kg

DRUGS (1)
  1. ZZZQUILL [Suspect]
     Active Substance: DIPHENHYDRAMINE HYDROCHLORIDE
     Dosage: UNK
     Route: 048
     Dates: start: 20141230, end: 20141230

REACTIONS (4)
  - Accidental exposure to product by child [None]
  - Exposure via ingestion [None]
  - Lethargy [None]
  - Fatigue [None]

NARRATIVE: CASE EVENT DATE: 20141230
